FAERS Safety Report 5151764-3 (Version None)
Quarter: 2006Q4

REPORT INFORMATION
  Report Type: 
  Country: None (occurrence: None)
  Receive Date: 20061106
  Receipt Date: 20061026
  Transmission Date: 20070319
  Serious: Yes (Other)
  Sender: FDA-Public Use
  Company Number: B0444918A

PATIENT
  Age: 31 Year
  Sex: Female

DRUGS (5)
  1. COMBIVIR [Suspect]
     Indication: ACQUIRED IMMUNODEFICIENCY SYNDROME
     Dosage: ORAL
     Route: 048
  2. KALETRA [Suspect]
     Indication: ACQUIRED IMMUNODEFICIENCY SYNDROME
  3. RIFAMPICIN [Concomitant]
  4. ISONIAZID [Concomitant]
  5. PYRAZINAMIDE [Concomitant]

REACTIONS (6)
  - GRANULOMA [None]
  - IMMUNE RECONSTITUTION SYNDROME [None]
  - LYMPHADENOPATHY [None]
  - MYCOBACTERIUM AVIUM COMPLEX INFECTION [None]
  - SPUTUM CULTURE POSITIVE [None]
  - SUBCUTANEOUS ABSCESS [None]
